FAERS Safety Report 6772501-2 (Version None)
Quarter: 2010Q2

REPORT INFORMATION
  Report Type: 
  Country: None (occurrence: None)
  Receive Date: 20100616
  Receipt Date: 20090724
  Transmission Date: 20101027
  Serious: No
  Sender: FDA-Public Use
  Company Number: US-ASTRAZENECA-2009SE06139

PATIENT
  Age: 61 Year
  Sex: Female

DRUGS (6)
  1. PULMICORT RESPULES [Suspect]
     Indication: COUGH
     Route: 055
  2. CRESTOR [Concomitant]
  3. SERTRALINE HCL [Concomitant]
  4. PANTOPRAZOLE [Concomitant]
  5. MOBIC [Concomitant]
  6. EYE DROPS [Concomitant]

REACTIONS (4)
  - EAR PAIN [None]
  - LARYNGEAL INFLAMMATION [None]
  - NASOPHARYNGITIS [None]
  - OROPHARYNGEAL PAIN [None]
